FAERS Safety Report 7583825-3 (Version None)
Quarter: 2011Q2

REPORT INFORMATION
  Report Type: 
  Country: None (occurrence: None)
  Receive Date: 20110630
  Receipt Date: 20110620
  Transmission Date: 20111010
  Serious: Yes (Hospitalization)
  Sender: FDA-Public Use
  Company Number: US-ROCHE-785504

PATIENT
  Sex: Male

DRUGS (1)
  1. XELODA [Suspect]
     Dosage: DOSE AND FREQUENCY NOT REPORTED
     Route: 048

REACTIONS (2)
  - DYSPHAGIA [None]
  - HOSPITALISATION [None]
